FAERS Safety Report 7705738-6 (Version None)
Quarter: 2011Q3

REPORT INFORMATION
  Report Type: 
  Country: None (occurrence: None)
  Receive Date: 20110824
  Receipt Date: 20110815
  Transmission Date: 20111222
  Serious: Yes (Life-Threatening, Hospitalization, Other)
  Sender: FDA-Public Use
  Company Number: US-BAYER-2011-004893

PATIENT
  Age: 25 Year
  Sex: Female
  Weight: 63.492 kg

DRUGS (12)
  1. YASMIN [Suspect]
     Dosage: UNK
     Dates: start: 20040101, end: 20060204
  2. LORTAB [Concomitant]
  3. DILAUDID [Concomitant]
  4. COUMADIN [Concomitant]
  5. ZOFRAN [Concomitant]
  6. LOVENOX [Concomitant]
  7. AMOXICILLIN [Concomitant]
  8. ACETAMINOPHEN [Concomitant]
  9. AUGMENTIN '125' [Concomitant]
  10. MOTRIN [Concomitant]
     Dosage: 800 MG, Q4HR
  11. AMBIEN [Concomitant]
  12. ALLEGRA [Concomitant]

REACTIONS (3)
  - THROMBOSIS [None]
  - DEEP VEIN THROMBOSIS [None]
  - PAIN [None]
